FAERS Safety Report 25718362 (Version 1)
Quarter: 2025Q3

REPORT INFORMATION
  Report Type: Spontaneous
  Country: EU (occurrence: EU)
  Receive Date: 20250824
  Receipt Date: 20250824
  Transmission Date: 20251021
  Serious: Yes (Hospitalization, Other)
  Sender: AUROBINDO
  Company Number: EU-AFSSAPS-PB2025000922

PATIENT
  Age: 72 Year
  Sex: Female
  Weight: 61 kg

DRUGS (2)
  1. DOXYCYCLINE [Suspect]
     Active Substance: DOXYCYCLINE
     Indication: Product used for unknown indication
     Route: 048
     Dates: start: 20250523, end: 20250606
  2. XALKORI [Suspect]
     Active Substance: CRIZOTINIB
     Indication: Lung adenocarcinoma
     Route: 048
     Dates: start: 20250523, end: 20250606

REACTIONS (3)
  - Hepatitis [Recovered/Resolved]
  - Rash morbilliform [Recovered/Resolved]
  - Pyrexia [Recovered/Resolved]

NARRATIVE: CASE EVENT DATE: 20250604
